FAERS Safety Report 20450033 (Version 1)
Quarter: 2022Q1

REPORT INFORMATION
  Report Type: Spontaneous
  Country: US (occurrence: US)
  Receive Date: 20220209
  Receipt Date: 20220209
  Transmission Date: 20220424
  Serious: No
  Sender: FDA-Public Use
  Company Number: US-SA-SAC20220203000101

PATIENT
  Age: 64 Year
  Sex: Female

DRUGS (11)
  1. DUPIXENT [Suspect]
     Active Substance: DUPILUMAB
     Indication: Dermatitis atopic
     Dosage: 300 MG, QOW
     Route: 058
     Dates: start: 20211215
  2. BETAMETHASONE DIPROPIONATE, AUGMENTED [Concomitant]
  3. BACTRIM DS [Concomitant]
     Active Substance: SULFAMETHOXAZOLE\TRIMETHOPRIM
     Dosage: 800-160
  4. FISH OIL [Concomitant]
     Active Substance: FISH OIL
  5. TRIAMCINOLONE [Concomitant]
     Active Substance: TRIAMCINOLONE
  6. LOSARTAN POTASSIUM [Concomitant]
     Active Substance: LOSARTAN POTASSIUM
  7. OMEPRAZOLE [Concomitant]
     Active Substance: OMEPRAZOLE
  8. ATORVASTATIN CALCIUM [Concomitant]
     Active Substance: ATORVASTATIN CALCIUM
  9. BUPROPION HYDROCHLORIDE [Concomitant]
     Active Substance: BUPROPION HYDROCHLORIDE
  10. ESTRADIOL [Concomitant]
     Active Substance: ESTRADIOL
  11. CLARITHROMYCIN [Concomitant]
     Active Substance: CLARITHROMYCIN

REACTIONS (8)
  - Rash macular [Unknown]
  - Head injury [Unknown]
  - Pruritus [Not Recovered/Not Resolved]
  - Eczema [Not Recovered/Not Resolved]
  - Skin fissures [Not Recovered/Not Resolved]
  - Skin exfoliation [Recovered/Resolved]
  - Dry skin [Not Recovered/Not Resolved]
  - Tremor [Unknown]

NARRATIVE: CASE EVENT DATE: 20211217
